FAERS Safety Report 11183692 (Version 1)
Quarter: 2015Q2

REPORT INFORMATION
  Report Type: Spontaneous
  Country: US (occurrence: None)
  Receive Date: 20150611
  Receipt Date: 20150611
  Transmission Date: 20150821
  Serious: Yes (Death)
  Sender: FDA-Public Use
  Company Number: None

PATIENT
  Age: 58 Year
  Sex: Female
  Weight: 89.81 kg

DRUGS (4)
  1. LIDOCAINE. [Suspect]
     Active Substance: LIDOCAINE
     Indication: VEHICLE SOLUTION USE
     Route: 030
     Dates: start: 20150602, end: 20150602
  2. MEDROXYPROGESTERONE 1GM (DEPO-MEDROL - PFIZER) [Concomitant]
  3. CYANOCOBALMIN 1000MCG (AMERICAN REGENT) [Concomitant]
  4. CEFTRIAXONE. [Suspect]
     Active Substance: CEFTRIAXONE
     Indication: SINUSITIS
     Route: 030
     Dates: start: 20150602, end: 20150602

REACTIONS (1)
  - Hypersensitivity [None]

NARRATIVE: CASE EVENT DATE: 20150602
